FAERS Safety Report 7344800-7 (Version None)
Quarter: 2011Q1

REPORT INFORMATION
  Report Type: 
  Country: None (occurrence: None)
  Receive Date: 20110228
  Receipt Date: 20110207
  Transmission Date: 20110831
  Serious: Yes (Death)
  Sender: FDA-Public Use
  Company Number: 2135225-2011-00012

PATIENT
  Age: 83 Year
  Sex: Female

DRUGS (2)
  1. AETHOXYSKLEROL [Suspect]
     Indication: VARICES OESOPHAGEAL
     Dosage: SUBMUCOUS, REPORTED FOR 3 WEEKS
     Dates: start: 19891030
  2. LIPIODOL ULTRA-FLUID [Concomitant]

REACTIONS (6)
  - TACHYPNOEA [None]
  - MELAENA [None]
  - SHOCK HAEMORRHAGIC [None]
  - VOMITING [None]
  - OESOPHAGEAL ULCER HAEMORRHAGE [None]
  - DYSPNOEA [None]
